FAERS Safety Report 14167729 (Version 3)
Quarter: 2019Q2

REPORT INFORMATION
  Report Type: Report from Study
  Country: US (occurrence: US)
  Receive Date: 20171107
  Receipt Date: 20190612
  Transmission Date: 20190711
  Serious: Yes (Hospitalization)
  Sender: FDA-Public Use
  Company Number: US-SA-2017SA078491

PATIENT
  Age: 66 Year
  Sex: Female

DRUGS (4)
  1. HUMALOG [Concomitant]
     Active Substance: INSULIN LISPRO
     Dosage: UNK
  2. INSULIN GLARGINE [Suspect]
     Active Substance: INSULIN GLARGINE
     Indication: TYPE 2 DIABETES MELLITUS
     Dosage: 82 DF, QD
     Route: 065
     Dates: start: 2016
  3. INSULIN GLARGINE [Suspect]
     Active Substance: INSULIN GLARGINE
     Dosage: UNK
  4. INSULIN GLARGINE [Suspect]
     Active Substance: INSULIN GLARGINE
     Dosage: 120 U, BID

REACTIONS (7)
  - Hospitalisation [Unknown]
  - Chronic obstructive pulmonary disease [Not Recovered/Not Resolved]
  - Limb injury [Not Recovered/Not Resolved]
  - Inappropriate schedule of product administration [Not Recovered/Not Resolved]
  - Device defective [Not Recovered/Not Resolved]
  - Weight increased [Unknown]
  - Blood glucose increased [Not Recovered/Not Resolved]
